FAERS Safety Report 15174655 (Version 1)
Quarter: 2018Q3

REPORT INFORMATION
  Report Type: Report from Study
  Country: US (occurrence: US)
  Receive Date: 20180720
  Receipt Date: 20180720
  Transmission Date: 20181010
  Serious: No
  Sender: FDA-Public Use
  Company Number: US-AMGEN-USASL2018062309

PATIENT
  Age: 71 Year
  Sex: Female

DRUGS (1)
  1. REPATHA [Suspect]
     Active Substance: EVOLOCUMAB
     Indication: PRODUCT USED FOR UNKNOWN INDICATION
     Dosage: 140 MG, Q2WK
     Route: 065
     Dates: start: 20180501

REACTIONS (5)
  - Pruritus [Unknown]
  - Joint swelling [Unknown]
  - Lethargy [Unknown]
  - Rhinorrhoea [Unknown]
  - Micturition disorder [Unknown]

NARRATIVE: CASE EVENT DATE: 201805
